FAERS Safety Report 7486189-9 (Version None)
Quarter: 2011Q2

REPORT INFORMATION
  Report Type: 
  Country: None (occurrence: None)
  Receive Date: 20110517
  Receipt Date: 20110407
  Transmission Date: 20111010
  Serious: Yes (Other)
  Sender: FDA-Public Use
  Company Number: US-BAYER-201036414NA

PATIENT
  Age: 23 Year
  Sex: Female
  Weight: 63.039 kg

DRUGS (3)
  1. LEVOTHYROXINE SODIUM [Concomitant]
  2. YAZ [Suspect]
     Indication: ACNE
     Route: 048
  3. YASMIN [Suspect]
     Indication: ACNE
     Route: 048

REACTIONS (2)
  - INJURY [None]
  - THROMBOPHLEBITIS SUPERFICIAL [None]
